FAERS Safety Report 6480505-2 (Version None)
Quarter: 2009Q4

REPORT INFORMATION
  Report Type: 
  Country: None (occurrence: None)
  Receive Date: 20091208
  Receipt Date: 20091201
  Transmission Date: 20100525
  Serious: Yes (Hospitalization)
  Sender: FDA-Public Use
  Company Number: JP-ASTRAZENECA-2009SE18607

PATIENT
  Sex: Male
  Weight: 61 kg

DRUGS (6)
  1. BLOPRESS [Suspect]
     Indication: HYPERTENSION
     Route: 048
     Dates: start: 20070804, end: 20090501
  2. ASPIRIN [Suspect]
     Route: 048
     Dates: start: 20090513
  3. PANALDINE [Suspect]
     Route: 048
     Dates: start: 20090513
  4. BASEN [Concomitant]
     Indication: DIABETES MELLITUS
     Route: 048
     Dates: end: 20070804
  5. BASEN [Concomitant]
     Route: 048
     Dates: start: 20070805, end: 20071218
  6. VOGLIBOSE [Concomitant]
     Indication: DIABETES MELLITUS
     Route: 048
     Dates: start: 20071219

REACTIONS (4)
  - ANAEMIA [None]
  - ANGINA PECTORIS [None]
  - CEREBRAL INFARCTION [None]
  - SMALL INTESTINAL HAEMORRHAGE [None]
